FAERS Safety Report 12419755 (Version 2)
Quarter: 2016Q3

REPORT INFORMATION
  Report Type: Spontaneous
  Country: BR (occurrence: BR)
  Receive Date: 20160531
  Receipt Date: 20160729
  Transmission Date: 20161109
  Serious: Yes (Hospitalization, Other)
  Sender: FDA-Public Use
  Company Number: BR-ABBVIE-16P-020-1639460-00

PATIENT
  Sex: Female
  Weight: 80 kg

DRUGS (8)
  1. CLOZAPINE. [Suspect]
     Active Substance: CLOZAPINE
     Indication: SCHIZOPHRENIA
     Dosage: 3 TABLETS AND A HALF PER DAY
     Route: 048
     Dates: end: 201501
  2. DEPAKENE [Suspect]
     Active Substance: VALPROIC ACID
     Indication: BIPOLAR DISORDER
     Dosage: 5 CAPSULES DAILY;2 CAPSULES IN THE MORNING AND 3 CAPSULES AT NIGHT
     Route: 065
     Dates: start: 201410
  3. DEPAKENE [Suspect]
     Active Substance: VALPROIC ACID
     Indication: MOOD ALTERED
     Route: 065
  4. GLIFAGE [Concomitant]
     Active Substance: METFORMIN HYDROCHLORIDE
     Indication: DIABETES MELLITUS
     Route: 065
  5. CLOZAPINE. [Suspect]
     Active Substance: CLOZAPINE
     Route: 065
  6. QUETIAPINE. [Concomitant]
     Active Substance: QUETIAPINE
     Indication: PRODUCT USED FOR UNKNOWN INDICATION
  7. ASACOL [Concomitant]
     Active Substance: MESALAMINE
     Indication: DIABETES MELLITUS
  8. LIPLESS [Concomitant]
     Active Substance: CIPROFIBRATE
     Indication: DIABETES MELLITUS

REACTIONS (5)
  - Off label use [Unknown]
  - Pleural effusion [Not Recovered/Not Resolved]
  - Hospitalisation [Unknown]
  - Product use issue [Unknown]
  - Respiratory disorder [Not Recovered/Not Resolved]
